FAERS Safety Report 9869542 (Version 7)
Quarter: 2014Q2

REPORT INFORMATION
  Report Type: Spontaneous
  Country: US (occurrence: US)
  Receive Date: 20140205
  Receipt Date: 20140606
  Transmission Date: 20141212
  Serious: No
  Sender: FDA-Public Use
  Company Number: US-PFIZER INC-2014031919

PATIENT
  Age: 76 Year
  Sex: Male
  Weight: 87.98 kg

DRUGS (17)
  1. SUTENT [Suspect]
     Indication: RENAL CANCER
     Dosage: 25 MG, DAILY (TWO 12.5MG PILLS)
     Dates: start: 20140115, end: 201402
  2. SUTENT [Suspect]
     Dosage: 37.5 MG DAILY (THREE 12.5MG PILLS)
     Dates: start: 20140204, end: 20140206
  3. SUTENT [Suspect]
     Dosage: 12.5 MG, UNK
     Dates: start: 20140213
  4. SUTENT [Suspect]
     Dosage: 25 MG, ON EVEN DAYS
     Dates: start: 2014
  5. SUTENT [Suspect]
     Dosage: 37.5 MG, ON ODD DAYS
     Dates: start: 2014
  6. SUTENT [Suspect]
     Dosage: UNK
     Dates: start: 2014, end: 20140424
  7. ADVAIR [Concomitant]
     Dosage: 250/50
     Route: 055
  8. ISOSORBIDE [Concomitant]
     Dosage: UNK
  9. LOSARTAN [Concomitant]
     Dosage: 25 MG, DAILY
  10. METOPROLOL [Concomitant]
     Dosage: 50 MG, 2X/DAY
  11. RANEXA [Concomitant]
     Dosage: 5 MG, DAILY
  12. TRADJENTA [Concomitant]
     Dosage: UNK
  13. LOVASTATIN [Concomitant]
     Dosage: UNK
  14. PEPCID AC [Concomitant]
     Dosage: UNK
  15. LEVOBUNOLOL [Concomitant]
     Dosage: UNK (5 %)
     Route: 047
  16. LUMIGAN [Concomitant]
     Dosage: UNK (0.1%)
     Route: 047
  17. TRUSOPT [Concomitant]
     Dosage: UNK, LEFT EYE ONLY
     Route: 047

REACTIONS (10)
  - Fatigue [Not Recovered/Not Resolved]
  - Nausea [Unknown]
  - Dizziness [Unknown]
  - Hypotension [Unknown]
  - Dehydration [Unknown]
  - Lacrimation increased [Unknown]
  - Rhinorrhoea [Unknown]
  - Gout [Recovered/Resolved]
  - Blood uric acid increased [Unknown]
  - Depression [Unknown]
